FAERS Safety Report 6786271-5 (Version None)
Quarter: 2010Q2

REPORT INFORMATION
  Report Type: 
  Country: None (occurrence: None)
  Receive Date: 20100623
  Receipt Date: 20100614
  Transmission Date: 20101027
  Serious: Yes (Hospitalization)
  Sender: FDA-Public Use
  Company Number: FR-ABBOTT-10P-056-0651089-00

PATIENT
  Age: 39 Year
  Sex: Female

DRUGS (2)
  1. LOPINAVIR/RITONAVIR [Suspect]
     Indication: HIV INFECTION
  2. ORLISTAT [Interacting]
     Indication: WEIGHT DECREASED

REACTIONS (2)
  - DRUG INTERACTION [None]
  - ENCEPHALITIS [None]
